FAERS Safety Report 22963688 (Version 3)
Quarter: 2023Q4

REPORT INFORMATION
  Report Type: Report from Study
  Country: US (occurrence: US)
  Receive Date: 20230921
  Receipt Date: 20231103
  Transmission Date: 20240110
  Serious: No
  Sender: FDA-Public Use
  Company Number: US-ABBVIE-5414703

PATIENT
  Sex: Female
  Weight: 90.718 kg

DRUGS (4)
  1. SKYRIZI [Suspect]
     Active Substance: RISANKIZUMAB-RZAA
     Indication: Psoriasis
     Route: 058
     Dates: start: 2022
  2. SKYRIZI [Suspect]
     Active Substance: RISANKIZUMAB-RZAA
     Indication: Psoriasis
     Route: 058
  3. ATENOLOL [Concomitant]
     Active Substance: ATENOLOL
     Indication: Hypertension
  4. PAROXETINE [Concomitant]
     Active Substance: PAROXETINE
     Indication: Depression

REACTIONS (3)
  - Pruritus [Recovering/Resolving]
  - Nervousness [Recovering/Resolving]
  - Therapeutic response shortened [Unknown]
